FAERS Safety Report 7866372-0 (Version None)
Quarter: 2011Q4

REPORT INFORMATION
  Report Type: 
  Country: None (occurrence: None)
  Receive Date: 20111028
  Receipt Date: 20110527
  Transmission Date: 20120403
  Serious: No
  Sender: FDA-Public Use
  Company Number: US-GLAXOSMITHKLINE-A0930408A

PATIENT
  Sex: Female

DRUGS (8)
  1. NEXIUM [Concomitant]
  2. COUMADIN [Concomitant]
  3. PRAVASTATIN [Concomitant]
  4. DIGOXIN [Concomitant]
  5. ADVAIR DISKUS 100/50 [Suspect]
     Indication: PRODUCT USED FOR UNKNOWN INDICATION
     Dosage: 1PUFF TWICE PER DAY
     Route: 055
  6. VITAMIN-MINERAL COMPOUND TAB [Concomitant]
  7. CITRACAL [Concomitant]
  8. ATENOLOL [Concomitant]

REACTIONS (1)
  - DYSPHONIA [None]
